FAERS Safety Report 5333341-4 (Version None)
Quarter: 2007Q2

REPORT INFORMATION
  Report Type: 
  Country: None (occurrence: None)
  Receive Date: 20070524
  Receipt Date: 20070510
  Transmission Date: 20071010
  Serious: Yes (Other)
  Sender: FDA-Public Use
  Company Number: US-ELI_LILLY_AND_COMPANY-US200705004704

PATIENT
  Age: 79 Year
  Sex: Female

DRUGS (7)
  1. FORTEO [Suspect]
     Dates: start: 20050501
  2. OXYCODONE HCL [Concomitant]
     Dosage: UNK, DAILY (1/D)
  3. DILAUDID [Concomitant]
     Dosage: UNK, DAILY (1/D)
  4. KLONOPIN [Concomitant]
     Dosage: UNK, EACH EVENING
  5. NEXIUM [Concomitant]
  6. DETROL /01350201/ [Concomitant]
     Indication: BLADDER DISORDER
  7. MUCINEX [Concomitant]
     Indication: RHINORRHOEA

REACTIONS (3)
  - CHOLELITHIASIS [None]
  - GENERAL PHYSICAL HEALTH DETERIORATION [None]
  - PYREXIA [None]
